FAERS Safety Report 23621472 (Version 1)
Quarter: 2024Q1

REPORT INFORMATION
  Report Type: Report from Study
  Country: US (occurrence: None)
  Receive Date: 20240312
  Receipt Date: 20240312
  Transmission Date: 20240409
  Serious: Yes (Other)
  Sender: FDA-Public Use
  Company Number: 2024A054271

PATIENT
  Sex: Male

DRUGS (1)
  1. LYNPARZA [Suspect]
     Active Substance: OLAPARIB
     Route: 048

REACTIONS (6)
  - Skull base tumour [Unknown]
  - Prostate cancer [Unknown]
  - Hypoacusis [Unknown]
  - Tongue atrophy [Unknown]
  - Aphonia [Unknown]
  - Prostatic specific antigen increased [Unknown]
